FAERS Safety Report 6025685-8 (Version None)
Quarter: 2008Q4

REPORT INFORMATION
  Report Type: 
  Country: None (occurrence: None)
  Receive Date: 20081231
  Receipt Date: 20081217
  Transmission Date: 20090506
  Serious: Yes (Death)
  Sender: FDA-Public Use
  Company Number: GB-GENENTECH-274706

PATIENT
  Age: 53 Year
  Sex: Female

DRUGS (2)
  1. RITUXIMAB [Suspect]
     Indication: NEUROMYELITIS OPTICA
  2. MITOXANTRONE [Suspect]
     Indication: IMMUNOSUPPRESSION

REACTIONS (1)
  - UROSEPSIS [None]
